FAERS Safety Report 5293802-3 (Version None)
Quarter: 2007Q2

REPORT INFORMATION
  Report Type: 
  Country: None (occurrence: None)
  Receive Date: 20070411
  Receipt Date: 20070330
  Transmission Date: 20071010
  Serious: Yes (Other)
  Sender: FDA-Public Use
  Company Number: DE-PFIZER INC-2007027415

PATIENT
  Sex: Female

DRUGS (2)
  1. CHAMPIX [Suspect]
     Route: 048
  2. INSULIN [Concomitant]

REACTIONS (2)
  - HAEMATOCHEZIA [None]
  - INTESTINAL HAEMORRHAGE [None]
